FAERS Safety Report 17297351 (Version 1)
Quarter: 2020Q1

REPORT INFORMATION
  Report Type: Spontaneous
  Country: CA (occurrence: CA)
  Receive Date: 20200121
  Receipt Date: 20200121
  Transmission Date: 20200409
  Serious: Yes (Hospitalization)
  Sender: FDA-Public Use
  Company Number: CA-TEVA-2020-CA-1172414

PATIENT
  Age: 74 Year
  Sex: Male

DRUGS (1)
  1. ERLOTINIB [Suspect]
     Active Substance: ERLOTINIB
     Indication: NEOPLASM MALIGNANT
     Dosage: 150 MILLIGRAM DAILY;
     Route: 048

REACTIONS (11)
  - Decreased appetite [Unknown]
  - Hypotension [Unknown]
  - Asthenia [Unknown]
  - Tri-iodothyronine free decreased [Unknown]
  - Fatigue [Unknown]
  - Blood thyroid stimulating hormone increased [Unknown]
  - Body temperature increased [Unknown]
  - Diarrhoea [Unknown]
  - Feeling cold [Unknown]
  - Thyroxine free decreased [Unknown]
  - Vital functions abnormal [Unknown]
